FAERS Safety Report 4435040-X (Version None)
Quarter: 2004Q3

REPORT INFORMATION
  Report Type: 
  Country: None (occurrence: None)
  Receive Date: 20040826
  Receipt Date: 20040826
  Transmission Date: 20050211
  Serious: Yes (Other)
  Sender: FDA-Public Use
  Company Number: None

PATIENT
  Age: 81 Year
  Sex: Male
  Weight: 68.0396 kg

DRUGS (1)
  1. TRAZODONE HCL [Suspect]
     Indication: SOMNOLENCE
     Dosage: 50 MG PO
     Route: 048
     Dates: start: 20040405

REACTIONS (3)
  - AGGRESSION [None]
  - AGITATION [None]
  - CONFUSIONAL STATE [None]
